FAERS Safety Report 17203562 (Version 1)
Quarter: 2019Q4

REPORT INFORMATION
  Report Type: Spontaneous
  Country: US (occurrence: US)
  Receive Date: 20191226
  Receipt Date: 20191226
  Transmission Date: 20200122
  Serious: No
  Sender: FDA-Public Use
  Company Number: US-CATALYST PHARMACEUTICALS, INC-2019CAT00391

PATIENT
  Sex: Female
  Weight: 92.97 kg

DRUGS (28)
  1. FUROSEMIDE. [Concomitant]
     Active Substance: FUROSEMIDE
  2. CALTRATE [Concomitant]
     Active Substance: CALCIUM CARBONATE
  3. L-THYROXINE [Concomitant]
     Active Substance: LEVOTHYROXINE
  4. SINGULAIR [Concomitant]
     Active Substance: MONTELUKAST SODIUM
  5. MIDODRINE [Concomitant]
     Active Substance: MIDODRINE
  6. FIRDAPSE [Suspect]
     Active Substance: AMIFAMPRIDINE
     Indication: MYASTHENIC SYNDROME
     Dosage: 10 MG, 3X/DAY
     Route: 048
     Dates: start: 201902, end: 201907
  7. GABAPENTIN. [Concomitant]
     Active Substance: GABAPENTIN
  8. IVIG [Concomitant]
     Active Substance: HUMAN IMMUNOGLOBULIN G
     Dosage: UNK, 4X/YEAR (EVERY 3 MONTHS)
  9. ADVAIR DISKUS [Concomitant]
     Active Substance: FLUTICASONE PROPIONATE\SALMETEROL XINAFOATE
  10. MUCINEX [Concomitant]
     Active Substance: GUAIFENESIN
     Indication: SEASONAL ALLERGY
  11. NEXIUM [Concomitant]
     Active Substance: ESOMEPRAZOLE MAGNESIUM
  12. PRAVASTATIN. [Concomitant]
     Active Substance: PRAVASTATIN
  13. AZATHIOPRINE. [Concomitant]
     Active Substance: AZATHIOPRINE
  14. MELATONIN [Concomitant]
     Active Substance: MELATONIN
  15. ZOFRAN [Concomitant]
     Active Substance: ONDANSETRON HYDROCHLORIDE
  16. FOLIC ACID. [Concomitant]
     Active Substance: FOLIC ACID
  17. VITAMIN B12 [Concomitant]
     Active Substance: CYANOCOBALAMIN
  18. POTASSIUM CHLORIDE. [Concomitant]
     Active Substance: POTASSIUM CHLORIDE
  19. BIOTIN [Concomitant]
     Active Substance: BIOTIN
  20. PREDNISONE. [Concomitant]
     Active Substance: PREDNISONE
  21. VITAMIN C [Concomitant]
     Active Substance: ASCORBIC ACID
  22. WARFARIN [Concomitant]
     Active Substance: WARFARIN
  23. FIRDAPSE [Suspect]
     Active Substance: AMIFAMPRIDINE
     Dosage: 20 MG, 3X/DAY
     Route: 048
     Dates: start: 201907
  24. ALBUTEROL. [Concomitant]
     Active Substance: ALBUTEROL
  25. IRON [Concomitant]
     Active Substance: IRON
  26. ^MENTION^ (PRESUMED MESTINON) [Concomitant]
  27. METOPROLOL. [Concomitant]
     Active Substance: METOPROLOL
  28. METROGEL [Concomitant]
     Active Substance: METRONIDAZOLE

REACTIONS (3)
  - Hypoaesthesia [Not Recovered/Not Resolved]
  - Peripheral swelling [Not Recovered/Not Resolved]
  - Paraesthesia [Not Recovered/Not Resolved]

NARRATIVE: CASE EVENT DATE: 2019
